FAERS Safety Report 6932031-1 (Version None)
Quarter: 2010Q3

REPORT INFORMATION
  Report Type: 
  Country: None (occurrence: None)
  Receive Date: 20100819
  Receipt Date: 20100817
  Transmission Date: 20110219
  Serious: Yes (Hospitalization)
  Sender: FDA-Public Use
  Company Number: US-ROXANE LABORATORIES, INC.-2010-RO-01105RO

PATIENT
  Age: 35 Year
  Sex: Male

DRUGS (14)
  1. PREDNISONE [Suspect]
     Indication: HEART TRANSPLANT
     Dosage: 10 MG
     Route: 048
     Dates: start: 20100801
  2. PREDNISONE [Suspect]
     Indication: RENAL TRANSPLANT
     Dosage: 15 MG
     Route: 048
     Dates: start: 20100701, end: 20100801
  3. PREDNISONE [Suspect]
     Dosage: 20 MG
     Route: 048
  4. PREDNISONE [Suspect]
     Dosage: 30 MG
     Route: 048
     Dates: start: 20100513
  5. PREDNISONE [Suspect]
     Dosage: 60 MG
     Route: 048
  6. FUROSEMIDE [Suspect]
  7. CALCITRIOL [Suspect]
  8. CELLCEPT [Concomitant]
  9. RAPAMUNE [Concomitant]
  10. PROGRAF [Concomitant]
  11. ACYCLOVIR [Concomitant]
  12. HYDROCHLOROTHIAZIDE [Concomitant]
  13. LIPITOR [Concomitant]
  14. MAGNESIUM [Concomitant]

REACTIONS (5)
  - AMNESIA [None]
  - DIABETES MELLITUS [None]
  - MOTOR DYSFUNCTION [None]
  - TREMOR [None]
  - WEIGHT INCREASED [None]
